FAERS Safety Report 18873967 (Version 1)
Quarter: 2021Q1

REPORT INFORMATION
  Report Type: Spontaneous
  Country: CN (occurrence: CN)
  Receive Date: 20210210
  Receipt Date: 20210210
  Transmission Date: 20210420
  Serious: Yes (Other)
  Sender: FDA-Public Use
  Company Number: CN-BAXTER-2021BAX002491

PATIENT
  Age: 46 Year
  Sex: Female
  Weight: 68 kg

DRUGS (8)
  1. ENDOXAN [Suspect]
     Active Substance: CYCLOPHOSPHAMIDE
     Indication: INVASIVE DUCTAL BREAST CARCINOMA
     Dosage: INTRA?PUMP INJECTION, 1? 2ND CYCLES OF EC?TH CHEMOTHERAPY, CYCLOPHOSPHAMIDE + 0.9% SODIUM CHLORIDE
     Route: 050
  2. ENDOXAN [Suspect]
     Active Substance: CYCLOPHOSPHAMIDE
     Dosage: INTRA?PUMP INJECTION, EC?TH REGIMEN, 3RD CYCLE  CYCLOPHOSPHAMIDE + 0.9% SODIUM CHLORIDE 100 ML
     Route: 050
     Dates: start: 20210106, end: 20210106
  3. EPIRUBICIN HYDROCHLORIDE. [Suspect]
     Active Substance: EPIRUBICIN HYDROCHLORIDE
     Dosage: DAY1 INTRA?PUMP INJECTION, EC?TH REGIMEN 3RD CYCLE EPIRUBICIN + 0.9% SODIUM CHLORIDE 100 ML
     Route: 050
     Dates: start: 20210106, end: 20210106
  4. SODIUM CHLORIDE. [Suspect]
     Active Substance: SODIUM CHLORIDE
     Dosage: INTRA?PUMP INJECTION, 1ST TO 2ND CYCLES 0.9% SODIUM CHLORIDE+ EPIRUBICIN HYDROCHLORIDE
     Route: 050
  5. SODIUM CHLORIDE. [Suspect]
     Active Substance: SODIUM CHLORIDE
     Dosage: INTRA?PUMP INJECTION, EC?TH REGIMEN, 3RD CYCLE  0.9% SODIUM CHLORIDE+ EPIRUBICIN 150 MG
     Route: 050
     Dates: start: 20210106, end: 20210106
  6. EPIRUBICIN HYDROCHLORIDE. [Suspect]
     Active Substance: EPIRUBICIN HYDROCHLORIDE
     Indication: INVASIVE DUCTAL BREAST CARCINOMA
     Dosage: DAY 1, INTRA?PUMP INJECTION, 1ST TO 2ND CYCLES, EPIRUBICIN HYDROCHLORIDE + 0.9% SODIUM CHLORIDE
     Route: 050
  7. SODIUM CHLORIDE. [Suspect]
     Active Substance: SODIUM CHLORIDE
     Indication: MEDICATION DILUTION
     Dosage: INTRA?PUMP INJECTION, 1ST TO 2ND CYCLES OF CHEMOTHERAPY, 0.9% SODIUM CHLORIDE+ CYCLOPHOSPHAMIDE
     Route: 050
  8. SODIUM CHLORIDE. [Suspect]
     Active Substance: SODIUM CHLORIDE
     Dosage: INTRA?PUMP INJECTION, EC?TH REGIMEN, 3RD CYCLE  0.9% SODIUM CHLORIDE+ CYCLOPHOSPHAMIDE 1000 MG
     Route: 050
     Dates: start: 20210106, end: 20210106

REACTIONS (3)
  - Myelosuppression [Recovering/Resolving]
  - Critical illness [Unknown]
  - Infection [Unknown]

NARRATIVE: CASE EVENT DATE: 202101
